FAERS Safety Report 19067953 (Version 4)
Quarter: 2021Q2

REPORT INFORMATION
  Report Type: Spontaneous
  Country: JP (occurrence: JP)
  Receive Date: 20210329
  Receipt Date: 20210601
  Transmission Date: 20210717
  Serious: Yes (Hospitalization, Other)
  Sender: FDA-Public Use
  Company Number: JP-ASTELLAS-2021JP005616

PATIENT
  Age: 82 Year
  Sex: Male
  Weight: 53 kg

DRUGS (13)
  1. MAGMITT [Concomitant]
     Active Substance: MAGNESIUM OXIDE
     Indication: CONSTIPATION
     Route: 048
     Dates: start: 20190531
  2. PREDONINE [Concomitant]
     Active Substance: PREDNISOLONE
     Indication: ADVERSE DRUG REACTION
     Route: 048
     Dates: start: 20190531, end: 20190812
  3. RABEPRAZOLE [Concomitant]
     Active Substance: RABEPRAZOLE
     Indication: ABDOMINAL DISCOMFORT
     Route: 048
     Dates: start: 20190805
  4. OLANZAPINE OD [Concomitant]
     Active Substance: OLANZAPINE
     Indication: NAUSEA
     Route: 048
     Dates: start: 20190813, end: 20191006
  5. LOSARTAN POTASSIUM ACCORD [Concomitant]
     Indication: HYPERTENSION
     Route: 048
  6. CARBAMAZEPINE A [Concomitant]
     Active Substance: CARBAMAZEPINE
     Indication: MUSCLE SPASMS
     Route: 048
     Dates: start: 20190729, end: 20191112
  7. NOVAMIN [Concomitant]
     Indication: NAUSEA
     Route: 048
     Dates: start: 20190531, end: 20190728
  8. ZYTIGA [Concomitant]
     Active Substance: ABIRATERONE ACETATE
     Indication: HORMONE-REFRACTORY PROSTATE CANCER
     Route: 048
     Dates: start: 20190531, end: 20190707
  9. FENTOS [Suspect]
     Active Substance: FENTANYL
     Indication: CANCER PAIN
     Route: 050
     Dates: start: 20190819, end: 20191105
  10. XTANDI [Suspect]
     Active Substance: ENZALUTAMIDE
     Indication: HORMONE-REFRACTORY PROSTATE CANCER
     Route: 048
     Dates: start: 20190708
  11. OXYCONTIN TR [Suspect]
     Active Substance: OXYCODONE HYDROCHLORIDE
     Indication: CANCER PAIN
     Route: 048
     Dates: start: 20190531, end: 20190818
  12. OXYCODONE HYDROCHLORIDE LEHIGH VALLEY [Concomitant]
     Indication: CANCER PAIN
     Dosage: UNK UNK, AS NEEDED
     Route: 048
     Dates: start: 20190531, end: 20191030
  13. SYMPROIC [Concomitant]
     Active Substance: NALDEMEDINE
     Indication: CONSTIPATION
     Dosage: 0.2 MG, ONCE DAILY
     Route: 048
     Dates: start: 20190729, end: 20191112

REACTIONS (4)
  - Cerebral infarction [Recovering/Resolving]
  - Fall [Recovered/Resolved]
  - Hemianopia homonymous [Recovering/Resolving]
  - Muscle spasms [Recovered/Resolved]

NARRATIVE: CASE EVENT DATE: 20190729
